FAERS Safety Report 10591916 (Version 1)
Quarter: 2014Q4

REPORT INFORMATION
  Report Type: Report from Study
  Country: JP (occurrence: JP)
  Receive Date: 20141119
  Receipt Date: 20141119
  Transmission Date: 20150529
  Serious: Yes (Other)
  Sender: FDA-Public Use
  Company Number: JP-ROCHE-1490638

PATIENT
  Age: 69 Year
  Sex: Male

DRUGS (3)
  1. ZEVALIN [Suspect]
     Active Substance: IBRITUMOMAB TIUXETAN
     Indication: NON-HODGKIN^S LYMPHOMA
     Dosage: A TOTAL OF 3 CYCLES OF FR THERAPY WERE ADMINISTERED
     Route: 042
     Dates: start: 20120725
  2. FLUDARABINE [Concomitant]
     Active Substance: FLUDARABINE PHOSPHATE
     Indication: NON-HODGKIN^S LYMPHOMA
     Dosage: A TOTAL OF 3 CYCLES OF FR THERAPY WERE ADMINISTERED
     Route: 065
  3. RITUXIMAB [Suspect]
     Active Substance: RITUXIMAB
     Indication: NON-HODGKIN^S LYMPHOMA
     Dosage: A TOTAL OF 3 CYCLES OF FR THERAPY WERE ADMINISTERED
     Route: 042

REACTIONS (1)
  - Bone marrow failure [Recovered/Resolved]

NARRATIVE: CASE EVENT DATE: 20120810
